FAERS Safety Report 6400876-2 (Version None)
Quarter: 2009Q4

REPORT INFORMATION
  Report Type: 
  Country: None (occurrence: None)
  Receive Date: 20091009
  Receipt Date: 20090925
  Transmission Date: 20100525
  Serious: Yes (Hospitalization)
  Sender: FDA-Public Use
  Company Number: 237733K07USA

PATIENT
  Age: 52 Year
  Sex: Female
  Weight: 113 kg

DRUGS (1)
  1. REBIF [Suspect]
     Indication: MULTIPLE SCLEROSIS
     Dosage: 44 MCG, 3 IN 1 WEEKS, SUBCUTANEOUS
     Route: 058
     Dates: start: 20030925

REACTIONS (4)
  - JOINT DISLOCATION [None]
  - OSTEONECROSIS [None]
  - PRODUCT QUALITY ISSUE [None]
  - SURGICAL PROCEDURE REPEATED [None]
